FAERS Safety Report 6187592-X (Version None)
Quarter: 2009Q2

REPORT INFORMATION
  Report Type: 
  Country: None (occurrence: None)
  Receive Date: 20090508
  Receipt Date: 20090427
  Transmission Date: 20091009
  Serious: No
  Sender: FDA-Public Use
  Company Number: 004428

PATIENT
  Sex: Male

DRUGS (6)
  1. PLETAL [Suspect]
     Indication: ARTERIOSCLEROSIS OBLITERANS
     Dosage: 100 MG, BID ORAL
     Route: 048
     Dates: start: 20080823, end: 20080829
  2. BAYASPIRIN (ACETYLSALICYLIC ACID) TABLET [Concomitant]
  3. AMARYL SWE (GLIMEPIRIDE) TABLET [Concomitant]
  4. WARFARIN SODIUM [Concomitant]
  5. CALBLOCK JPN (AZELNIDIPINE) TABLET [Concomitant]
  6. PREMINENT (LOSARTAN POTASSIUM_HYDROCHLOROTHIAZIDE) TABLET [Concomitant]

REACTIONS (2)
  - CARDIAC FAILURE [None]
  - OEDEMA PERIPHERAL [None]
